FAERS Safety Report 8315243-4 (Version None)
Quarter: 2012Q2

REPORT INFORMATION
  Report Type: 
  Country: None (occurrence: None)
  Receive Date: 20120426
  Receipt Date: 20120423
  Transmission Date: 20120825
  Serious: Yes (Hospitalization)
  Sender: FDA-Public Use
  Company Number: PHHY2012CO016393

PATIENT
  Sex: Female

DRUGS (7)
  1. METFORMIN HCL [Concomitant]
  2. OMEPRAZOLE [Concomitant]
  3. SERTRALINE HYDROCHLORIDE [Concomitant]
     Indication: DEPRESSION
  4. METOPROLOL SUCCINATE [Concomitant]
  5. FLUTICASONE PROPIONATE/SALMETEROL [Concomitant]
  6. ASPIRIN [Concomitant]
  7. ZOLEDRONOC ACID [Suspect]
     Indication: OSTEOPOROSIS
     Dosage: 5 MG,/100 ML, PER YEAR
     Route: 042
     Dates: start: 20101201

REACTIONS (2)
  - MALAISE [None]
  - CHRONIC OBSTRUCTIVE PULMONARY DISEASE [None]
